FAERS Safety Report 9837100 (Version 1)
Quarter: 2014Q1

REPORT INFORMATION
  Report Type: Spontaneous
  Country: FR (occurrence: FR)
  Receive Date: 20140123
  Receipt Date: 20140123
  Transmission Date: 20141002
  Serious: Yes (Hospitalization, Other)
  Sender: FDA-Public Use
  Company Number: FR-ELI_LILLY_AND_COMPANY-FR201401004273

PATIENT
  Age: 39 Year
  Sex: Male

DRUGS (2)
  1. ZYPREXA [Suspect]
     Indication: INTENTIONAL OVERDOSE
     Dosage: 105 MG, SINGLE
     Route: 048
     Dates: start: 20130418, end: 20130418
  2. ALCOHOL [Concomitant]
     Indication: PRODUCT USED FOR UNKNOWN INDICATION
     Dosage: 1 DF, UNKNOWN
     Route: 065

REACTIONS (9)
  - Poisoning deliberate [Recovered/Resolved]
  - Agitation [Recovered/Resolved]
  - Sinus tachycardia [Recovered/Resolved]
  - Rhabdomyolysis [Unknown]
  - Blood pressure abnormal [Recovered/Resolved]
  - Miosis [Recovered/Resolved]
  - Aggression [Recovered/Resolved]
  - Dysarthria [Unknown]
  - Intentional overdose [Unknown]
